FAERS Safety Report 14340452 (Version 1)
Quarter: 2018Q1

REPORT INFORMATION
  Report Type: Report from Study
  Country: US (occurrence: US)
  Receive Date: 20180101
  Receipt Date: 20180101
  Transmission Date: 20180509
  Serious: No
  Sender: FDA-Public Use
  Company Number: PHEH2017US037222

PATIENT
  Sex: Male

DRUGS (2)
  1. ENTRESTO [Suspect]
     Active Substance: SACUBITRIL\VALSARTAN
     Dosage: 1 DF(SACUBITRIL 24 MG/VALSARTAN 26 MG), BID
     Route: 048
     Dates: start: 20170716
  2. ENTRESTO [Suspect]
     Active Substance: SACUBITRIL\VALSARTAN
     Dosage: 1 DF(SACUBITRIL 49 MG/VALSARTAN 51 MG), BID
     Route: 048

REACTIONS (2)
  - Diplopia [Unknown]
  - Eye disorder [Unknown]
